FAERS Safety Report 6193596-3 (Version None)
Quarter: 2009Q2

REPORT INFORMATION
  Report Type: 
  Country: None (occurrence: None)
  Receive Date: 20090518
  Receipt Date: 20090507
  Transmission Date: 20091009
  Serious: Yes (Death, Hospitalization)
  Sender: FDA-Public Use
  Company Number: BR-AMGEN-STX336058

PATIENT
  Sex: Male

DRUGS (1)
  1. PANITUMUMAB [Suspect]
     Indication: SQUAMOUS CELL CARCINOMA
     Route: 042
     Dates: start: 20080903, end: 20090205

REACTIONS (5)
  - HEAD AND NECK CANCER [None]
  - HEADACHE [None]
  - INTRACRANIAL PRESSURE INCREASED [None]
  - MALIGNANT NEOPLASM PROGRESSION [None]
  - PHARYNGEAL LESION [None]
